FAERS Safety Report 15780465 (Version 1)
Quarter: 2019Q1

REPORT INFORMATION
  Report Type: Report from Study
  Country: CA (occurrence: CA)
  Receive Date: 20190102
  Receipt Date: 20190102
  Transmission Date: 20190417
  Serious: Yes (Other)
  Sender: FDA-Public Use
  Company Number: CA-ROCHE-2228164

PATIENT
  Age: 72 Year
  Sex: Male

DRUGS (15)
  1. TERAZOSIN [Concomitant]
     Active Substance: TERAZOSIN\TERAZOSIN HYDROCHLORIDE
  2. ESBRIET [Suspect]
     Active Substance: PIRFENIDONE
     Route: 048
     Dates: start: 20180608, end: 20181205
  3. NEXIUM [Concomitant]
     Active Substance: ESOMEPRAZOLE MAGNESIUM
  4. ESBRIET [Suspect]
     Active Substance: PIRFENIDONE
     Indication: IDIOPATHIC PULMONARY FIBROSIS
     Route: 048
     Dates: start: 20180502
  5. ESBRIET [Suspect]
     Active Substance: PIRFENIDONE
     Route: 065
     Dates: start: 201806
  6. ESBRIET [Suspect]
     Active Substance: PIRFENIDONE
     Route: 065
     Dates: start: 2018
  7. ESBRIET [Suspect]
     Active Substance: PIRFENIDONE
     Route: 065
     Dates: start: 20181220
  8. ESBRIET [Suspect]
     Active Substance: PIRFENIDONE
     Route: 048
     Dates: start: 20180605
  9. ESBRIET [Suspect]
     Active Substance: PIRFENIDONE
     Route: 065
     Dates: start: 20180519
  10. ESBRIET [Suspect]
     Active Substance: PIRFENIDONE
     Route: 065
     Dates: start: 20181206
  11. HYDROCHLOROTHIAZIDE. [Concomitant]
     Active Substance: HYDROCHLOROTHIAZIDE
  12. METOPROLOL. [Concomitant]
     Active Substance: METOPROLOL
  13. ROSUVASTATIN. [Concomitant]
     Active Substance: ROSUVASTATIN
  14. ESBRIET [Suspect]
     Active Substance: PIRFENIDONE
     Route: 065
     Dates: start: 20181217
  15. RAMIPRIL. [Concomitant]
     Active Substance: RAMIPRIL

REACTIONS (6)
  - Sunburn [Unknown]
  - Swelling face [Unknown]
  - Burning sensation [Unknown]
  - Rash pruritic [Not Recovered/Not Resolved]
  - Burning sensation [Unknown]
  - Rash [Unknown]

NARRATIVE: CASE EVENT DATE: 201812
